FAERS Safety Report 20804143 (Version 1)
Quarter: 2022Q2

REPORT INFORMATION
  Report Type: Spontaneous
  Country: US (occurrence: US)
  Receive Date: 20220509
  Receipt Date: 20220509
  Transmission Date: 20220721
  Serious: No
  Sender: FDA-Public Use
  Company Number: US-PFIZER INC-202101781027

PATIENT
  Age: 24 Year
  Sex: Male
  Weight: 99.79 kg

DRUGS (4)
  1. LIOTHYRONINE SODIUM [Suspect]
     Active Substance: LIOTHYRONINE SODIUM
     Dosage: UNK
  2. LIOTHYRONINE SODIUM [Suspect]
     Active Substance: LIOTHYRONINE SODIUM
     Dosage: UNK
  3. ARMOUR THYROID [Concomitant]
     Active Substance: THYROID, PORCINE
     Indication: Hypothyroidism
     Dosage: 4 GRAINS, ONCE EVERY MORNING
  4. PREDNISONE [Concomitant]
     Active Substance: PREDNISONE
     Indication: Adrenal disorder
     Dosage: 5 MG, 1X/DAY

REACTIONS (2)
  - Allergic reaction to excipient [Unknown]
  - Rash [Unknown]
